FAERS Safety Report 24860928 (Version 2)
Quarter: 2025Q3

REPORT INFORMATION
  Report Type: Report from Study
  Country: US (occurrence: US)
  Receive Date: 20250120
  Receipt Date: 20250809
  Transmission Date: 20251021
  Serious: Yes (Other)
  Sender: ALEXION PHARMACEUTICALS
  Company Number: US-ASTRAZENECA-202501USA011561US

PATIENT
  Sex: Male

DRUGS (2)
  1. STRENSIQ [Suspect]
     Active Substance: ASFOTASE ALFA
     Route: 065
  2. AZITHROMYCIN [Suspect]
     Active Substance: AZITHROMYCIN
     Route: 065

REACTIONS (7)
  - Lower respiratory tract infection [Unknown]
  - Deafness unilateral [Unknown]
  - Illness [Unknown]
  - Nausea [Unknown]
  - Hepatic pain [Unknown]
  - Abdominal pain upper [Unknown]
  - Eating disorder [Unknown]

NARRATIVE: CASE EVENT DATE: 20241227
